FAERS Safety Report 16395823 (Version 2)
Quarter: 2019Q3

REPORT INFORMATION
  Report Type: Report from Study
  Country: US (occurrence: US)
  Receive Date: 20190605
  Receipt Date: 20190715
  Transmission Date: 20191004
  Serious: Yes (Hospitalization)
  Sender: FDA-Public Use
  Company Number: US-EISAI MEDICAL RESEARCH-EC-2019-054946

PATIENT
  Age: 61 Year
  Sex: Male
  Weight: 72.5 kg

DRUGS (10)
  1. OXYCONTIN [Concomitant]
     Active Substance: OXYCODONE HYDROCHLORIDE
  2. LENVIMA [Suspect]
     Active Substance: LENVATINIB
     Indication: RENAL CANCER
     Route: 048
     Dates: start: 20190329, end: 201904
  3. XANAX [Concomitant]
     Active Substance: ALPRAZOLAM
  4. AFINITOR [Concomitant]
     Active Substance: EVEROLIMUS
  5. AMLODIPINE BESYLATE. [Concomitant]
     Active Substance: AMLODIPINE BESYLATE
  6. LENVIMA [Suspect]
     Active Substance: LENVATINIB
     Route: 048
     Dates: start: 201906
  7. PERCOCET [Concomitant]
     Active Substance: ACETAMINOPHEN\OXYCODONE HYDROCHLORIDE
  8. GABAPENTIN. [Concomitant]
     Active Substance: GABAPENTIN
  9. LENVIMA [Suspect]
     Active Substance: LENVATINIB
     Route: 048
     Dates: start: 201906, end: 201906
  10. ENALAPRIL MALEATE. [Concomitant]
     Active Substance: ENALAPRIL MALEATE

REACTIONS (17)
  - Pain in extremity [Not Recovered/Not Resolved]
  - Blood iron decreased [Unknown]
  - Hypersomnia [Unknown]
  - Toothache [Unknown]
  - Bone pain [Unknown]
  - Stomatitis [Unknown]
  - Oropharyngeal pain [Unknown]
  - Cancer pain [Recovering/Resolving]
  - Hypotension [Recovered/Resolved]
  - Rash pruritic [Unknown]
  - Dry mouth [Unknown]
  - Amnesia [Unknown]
  - Oral pain [Unknown]
  - Fatigue [Unknown]
  - Hypophagia [Unknown]
  - Dehydration [Unknown]
  - Metastases to bone [Unknown]

NARRATIVE: CASE EVENT DATE: 2019
